FAERS Safety Report 18091571 (Version 1)
Quarter: 2020Q3

REPORT INFORMATION
  Report Type: Spontaneous
  Country: US (occurrence: US)
  Receive Date: 20200729
  Receipt Date: 20200729
  Transmission Date: 20201103
  Serious: Yes (Disabling)
  Sender: FDA-Public Use
  Company Number: None

PATIENT
  Age: 24 Year
  Sex: Female
  Weight: 79.65 kg

DRUGS (2)
  1. PHENTERMINE 37.5 MG TABLETS ? GENERIC FOR ADIPEX?P 37.5 MG TABLETS [Suspect]
     Active Substance: PHENTERMINE
     Indication: WEIGHT CONTROL
     Dosage: ?          QUANTITY:1 TABLET(S);?
     Route: 048
     Dates: start: 20200729, end: 20200729
  2. PHENTERMINE 37.5 MG TABLETS ? GENERIC FOR ADIPEX?P 37.5 MG TABLETS [Suspect]
     Active Substance: PHENTERMINE
     Indication: OBESITY
     Dosage: ?          QUANTITY:1 TABLET(S);?
     Route: 048
     Dates: start: 20200729, end: 20200729

REACTIONS (15)
  - Malaise [None]
  - Visual brightness [None]
  - Presyncope [None]
  - Mydriasis [None]
  - Tremor [None]
  - Hyperhidrosis [None]
  - Depressed level of consciousness [None]
  - Hallucination [None]
  - Dyspnoea [None]
  - Anxiety [None]
  - Dizziness [None]
  - Palpitations [None]
  - Hypertension [None]
  - Paraesthesia [None]
  - Heart rate irregular [None]

NARRATIVE: CASE EVENT DATE: 20200729
